FAERS Safety Report 24879935 (Version 1)
Quarter: 2025Q1

REPORT INFORMATION
  Report Type: Spontaneous
  Country: US (occurrence: US)
  Receive Date: 20250123
  Receipt Date: 20250123
  Transmission Date: 20250409
  Serious: No
  Sender: ELI LILLY AND COMPANY
  Company Number: US-ELI_LILLY_AND_COMPANY-US202501013683

PATIENT
  Age: 50 Year
  Sex: Female

DRUGS (2)
  1. TALTZ [Suspect]
     Active Substance: IXEKIZUMAB
     Indication: Spondyloarthropathy
     Route: 058
  2. TALTZ [Suspect]
     Active Substance: IXEKIZUMAB

REACTIONS (2)
  - Off label use [Not Recovered/Not Resolved]
  - Injection site reaction [Recovered/Resolved]
